FAERS Safety Report 13175320 (Version 2)
Quarter: 2017Q1

REPORT INFORMATION
  Report Type: Spontaneous
  Country: US (occurrence: US)
  Receive Date: 20170201
  Receipt Date: 20170327
  Transmission Date: 20170428
  Serious: Yes (Death, Other)
  Sender: FDA-Public Use
  Company Number: US-SA-2017SA015291

PATIENT
  Age: 65 Year
  Sex: Female
  Weight: 92.4 kg

DRUGS (13)
  1. VITAMIN E [Concomitant]
     Active Substance: .ALPHA.-TOCOPHEROL
  2. PANTOTHENIC ACID [Concomitant]
     Active Substance: PANTOTHENIC ACID
  3. RENVELA [Suspect]
     Active Substance: SEVELAMER CARBONATE
     Indication: DRUG THERAPY
     Route: 065
     Dates: start: 20161025, end: 20161101
  4. VITAMIN A [Concomitant]
     Active Substance: VITAMIN A
  5. FOLIC ACID. [Concomitant]
     Active Substance: FOLIC ACID
  6. CHOLINE [Concomitant]
     Active Substance: CHOLINE
  7. VITAMIN K [Concomitant]
     Active Substance: PHYTONADIONE
  8. THIAMIN [Concomitant]
     Active Substance: THIAMINE
  9. VITAMIN C [Concomitant]
     Active Substance: ASCORBIC ACID
  10. BETACAROTENE [Concomitant]
     Active Substance: .BETA.-CAROTENE
  11. VITAMIN D [Concomitant]
     Active Substance: CHOLECALCIFEROL
  12. NIACIN. [Concomitant]
     Active Substance: NIACIN
  13. RIBOFLAVIN [Concomitant]
     Active Substance: RIBOFLAVIN

REACTIONS (8)
  - Chills [Unknown]
  - Death [Fatal]
  - Skin ulcer [Not Recovered/Not Resolved]
  - Skin discolouration [Unknown]
  - Localised infection [Unknown]
  - Malaise [Not Recovered/Not Resolved]
  - Pain [Not Recovered/Not Resolved]
  - Pyrexia [Unknown]

NARRATIVE: CASE EVENT DATE: 2016
